FAERS Safety Report 19506399 (Version 1)
Quarter: 2021Q3

REPORT INFORMATION
  Report Type: Spontaneous
  Country: US (occurrence: US)
  Receive Date: 20210708
  Receipt Date: 20210708
  Transmission Date: 20211014
  Serious: Yes (Hospitalization)
  Sender: FDA-Public Use
  Company Number: None

PATIENT
  Age: 30 Year
  Sex: Male
  Weight: 83 kg

DRUGS (2)
  1. BUPROPION (BUPROPION HCL 300MG 24HR TABS, SA) [Suspect]
     Active Substance: BUPROPION HYDROCHLORIDE
     Indication: DEPRESSION
     Route: 048
     Dates: start: 20190411, end: 20210331
  2. BUPROPION (BUPROPION HCL 300MG 24HR TABS, SA) [Suspect]
     Active Substance: BUPROPION HYDROCHLORIDE
     Indication: POST-TRAUMATIC STRESS DISORDER
     Route: 048
     Dates: start: 20190411, end: 20210331

REACTIONS (5)
  - Feeling abnormal [None]
  - Alcohol use [None]
  - Seizure [None]
  - Fatigue [None]
  - Accidental overdose [None]

NARRATIVE: CASE EVENT DATE: 20210331
